FAERS Safety Report 22245551 (Version 1)
Quarter: 2023Q2

REPORT INFORMATION
  Report Type: Spontaneous
  Country: US (occurrence: None)
  Receive Date: 20230421
  Receipt Date: 20230421
  Transmission Date: 20230722
  Serious: Yes (Death)
  Sender: FDA-Public Use
  Company Number: None

PATIENT
  Age: 78 Year
  Sex: Male
  Weight: 44.59 kg

DRUGS (16)
  1. BRAFTOVI [Suspect]
     Active Substance: ENCORAFENIB
     Indication: Colon cancer
     Dosage: FREQUENCY : DAILY;?
     Route: 048
  2. BISACODYL [Concomitant]
     Active Substance: BISACODYL
  3. DULCOLAX NOS [Concomitant]
     Active Substance: BISACODYL OR DOCUSATE SODIUM
  4. FERROUS SULFATE [Concomitant]
     Active Substance: FERROUS SULFATE
  5. GOLYTELY [Concomitant]
     Active Substance: POLYETHYLENE GLYCOL 3350\POTASSIUM CHLORIDE\SODIUM BICARBONATE\SODIUM CHLORIDE\SODIUM SULFATE
  6. LINZESS [Concomitant]
     Active Substance: LINACLOTIDE
  7. MAGNESIUM CITRATE [Concomitant]
     Active Substance: MAGNESIUM CITRATE
  8. METRONIDAZOLE [Concomitant]
  9. MILK OF MAGNESIA [Concomitant]
     Active Substance: MAGNESIUM HYDROXIDE
  10. NARCAN [Concomitant]
  11. NEOMYCIN [Concomitant]
  12. ONDANSETRON [Concomitant]
  13. OXYCODONE [Concomitant]
  14. POTASSIUM CHLORIDE [Concomitant]
     Active Substance: POTASSIUM CHLORIDE
  15. PROCHLORPERAZINE [Concomitant]
  16. TRAZODONE [Concomitant]
     Active Substance: TRAZODONE HYDROCHLORIDE

REACTIONS (1)
  - Death [None]

NARRATIVE: CASE EVENT DATE: 20230420
